FAERS Safety Report 7907135-7 (Version None)
Quarter: 2011Q4

REPORT INFORMATION
  Report Type: 
  Country: None (occurrence: None)
  Receive Date: 20111110
  Receipt Date: 20110615
  Transmission Date: 20120403
  Serious: Yes (Other)
  Sender: FDA-Public Use
  Company Number: US-ASTRAZENECA-2011SE37000

PATIENT
  Sex: Female

DRUGS (3)
  1. VENTOLIN [Concomitant]
  2. LISINOPRIL [Suspect]
     Route: 048
  3. SYMBICORT [Concomitant]
     Dosage: 160/4.5 UNKNOWN
     Route: 055

REACTIONS (1)
  - ANGIOEDEMA [None]
